FAERS Safety Report 5924069-8 (Version None)
Quarter: 2008Q3

REPORT INFORMATION
  Report Type: 
  Country: None (occurrence: None)
  Receive Date: 20080909
  Receipt Date: 20080403
  Transmission Date: 20090109
  Serious: Yes (Hospitalization, Other)
  Sender: FDA-Public Use
  Company Number: 163-20785-08020214

PATIENT
  Age: 88 Year
  Sex: Male

DRUGS (4)
  1. THALOMID [Suspect]
     Indication: B-CELL LYMPHOMA
     Dosage: 200 MG, 1 IN 1 D, ORAL
     Route: 048
     Dates: start: 20071009, end: 20071101
  2. THALOMID [Suspect]
     Indication: MULTIPLE MYELOMA
     Dosage: 200 MG, 1 IN 1 D, ORAL
     Route: 048
     Dates: start: 20071009, end: 20071101
  3. DEXAMETHASONE TAB [Concomitant]
  4. ALLOPURINOL [Concomitant]

REACTIONS (10)
  - ANAEMIA [None]
  - ASTHENIA [None]
  - BRADYCARDIA [None]
  - CHILLS [None]
  - CONSTIPATION [None]
  - DYSAESTHESIA [None]
  - FORMICATION [None]
  - OEDEMA PERIPHERAL [None]
  - SYNCOPE [None]
  - THROMBOCYTOPENIA [None]
